FAERS Safety Report 5488769-9 (Version None)
Quarter: 2007Q4

REPORT INFORMATION
  Report Type: 
  Country: None (occurrence: None)
  Receive Date: 20071017
  Receipt Date: 20071010
  Transmission Date: 20080405
  Serious: Yes (Other)
  Sender: FDA-Public Use
  Company Number: US-PFIZER INC-2007085642

PATIENT
  Sex: Male
  Weight: 80.909 kg

DRUGS (3)
  1. VIAGRA [Suspect]
     Indication: ERECTILE DYSFUNCTION
     Dosage: TEXT:50MG
     Dates: start: 20070124, end: 20070301
  2. GLUCOSAMINE [Concomitant]
  3. VITAMIN CAP [Concomitant]

REACTIONS (4)
  - CATARACT [None]
  - RETINAL DETACHMENT [None]
  - RETINAL TEAR [None]
  - SWELLING [None]
